FAERS Safety Report 9677152 (Version 2)
Quarter: 2013Q4

REPORT INFORMATION
  Report Type: Spontaneous
  Country: AU (occurrence: AU)
  Receive Date: 20131108
  Receipt Date: 20131108
  Transmission Date: 20140711
  Serious: Yes (Other)
  Sender: FDA-Public Use
  Company Number: AU-BRISTOL-MYERS SQUIBB COMPANY-19520931

PATIENT
  Age: 75 Year
  Sex: Male
  Weight: 70.8 kg

DRUGS (12)
  1. ELIQUIS [Suspect]
     Indication: CEREBROVASCULAR ACCIDENT PROPHYLAXIS
     Dosage: TABS.
     Route: 048
     Dates: start: 20130905, end: 20130927
  2. ASPIRIN [Suspect]
  3. ALENDRONATE SODIUM + COLECALCIFEROL [Concomitant]
     Dosage: 1DF = 70MG; 140MCG TABLET
  4. CELESTONE CHRONODOSE [Concomitant]
     Dosage: INJECTION
  5. LASIX [Concomitant]
     Dosage: TABS
  6. LYRICA [Concomitant]
  7. METOPROLOL SUCCINATE [Concomitant]
     Dosage: TABS
  8. NEXIUM [Concomitant]
     Dosage: TABS
  9. NICORANDIL [Concomitant]
     Dosage: TABS
  10. NITROLINGUAL SPRAY [Concomitant]
     Indication: PAIN
     Route: 060
  11. OXAZEPAM [Concomitant]
  12. VYTORIN [Concomitant]
     Dosage: 1DF = 10MG;40MG TABLET

REACTIONS (3)
  - Gastrointestinal haemorrhage [Recovered/Resolved]
  - Gastritis erosive [Unknown]
  - Haemorrhoids [Unknown]
